FAERS Safety Report 4362580-4 (Version None)
Quarter: 2004Q2

REPORT INFORMATION
  Report Type: 
  Country: None (occurrence: None)
  Receive Date: 20040520
  Receipt Date: 20040504
  Transmission Date: 20050107
  Serious: Yes (Hospitalization)
  Sender: FDA-Public Use
  Company Number: T03-USA-02226-01

PATIENT
  Age: 83 Year
  Sex: Female
  Weight: 57.6068 kg

DRUGS (21)
  1. MEMANTINE (OPEN LABEL, PHASE B)  (MEMANTINE) [Suspect]
     Indication: DEMENTIA ALZHEIMER'S TYPE
     Dosage: 20 MG QD PO
     Route: 048
     Dates: start: 20030211, end: 20030528
  2. MEMANTINE HCL [Suspect]
     Indication: DEMENTIA ALZHEIMER'S TYPE
     Dosage: 20 MG QHS PO
     Route: 048
     Dates: start: 20021210, end: 20030211
  3. BISMUTH SUBSALICYLATE [Concomitant]
  4. MESALAMINE [Concomitant]
  5. ACETAMINOPHEN [Concomitant]
  6. MULTI-VITAMINS [Concomitant]
  7. OYSTER SHELL CALCIUM (CALCIUM CARBONATE) [Concomitant]
  8. QUETIAPINE FUMARATE [Concomitant]
  9. FERROUS SULFAE [Concomitant]
  10. NITRUFURANTOIN (NITROFURANTOIN) [Concomitant]
  11. FLONASE [Concomitant]
  12. EPC CREAM [Concomitant]
  13. CELECOXIB [Concomitant]
  14. CEHPHALEXIN MONOHYDRATE (CEPHALEXIN) [Concomitant]
  15. VITAMIN C [Concomitant]
  16. MEGACE [Concomitant]
  17. RESOURCE JUICE [Concomitant]
  18. RESOURCE ARGINAID [Concomitant]
  19. LEVOFLOXCIN [Concomitant]
  20. CLOPIDOGREL BISULFATE [Concomitant]
  21. PROMOD POWDER [Concomitant]

REACTIONS (29)
  - ANAEMIA [None]
  - ANXIETY [None]
  - AORTIC VALVE INCOMPETENCE [None]
  - ATELECTASIS [None]
  - ATRIAL FIBRILLATION [None]
  - CELLULITIS [None]
  - CHEST PAIN [None]
  - DECUBITUS ULCER [None]
  - DEPRESSION [None]
  - DILATATION ATRIAL [None]
  - DYSPNOEA [None]
  - ELECTROCARDIOGRAM ST SEGMENT ELEVATION [None]
  - FALL [None]
  - FATIGUE [None]
  - GENERAL PHYSICAL HEALTH DETERIORATION [None]
  - HEART RATE INCREASED [None]
  - INJURY [None]
  - LUNG INFILTRATION [None]
  - NASAL CONGESTION [None]
  - NAUSEA [None]
  - OEDEMA PERIPHERAL [None]
  - OSTEOARTHRITIS [None]
  - PERICARDIAL EFFUSION [None]
  - PNEUMONIA [None]
  - SUPRAVENTRICULAR EXTRASYSTOLES [None]
  - TRICUSPID VALVE INCOMPETENCE [None]
  - URINARY TRACT INFECTION [None]
  - VENTRICULAR HYPERTROPHY [None]
  - WHITE BLOOD CELL COUNT INCREASED [None]
